FAERS Safety Report 15997675 (Version 1)
Quarter: 2019Q1

REPORT INFORMATION
  Report Type: Spontaneous
  Country: IN (occurrence: IN)
  Receive Date: 20190222
  Receipt Date: 20190222
  Transmission Date: 20190418
  Serious: Yes (Hospitalization, Other)
  Sender: FDA-Public Use
  Company Number: IN-009507513-1902IND008650

PATIENT
  Age: 34 Year
  Sex: Male
  Weight: 44.5 kg

DRUGS (9)
  1. BEDAQUILINE [Suspect]
     Active Substance: BEDAQUILINE
     Indication: PULMONARY TUBERCULOSIS
     Dosage: 200 MILLIGRAM, 3 TIMES PER WEEK
     Route: 048
     Dates: start: 20181224
  2. PYRIDOXINE [Concomitant]
     Active Substance: PYRIDOXINE
     Indication: PROPHYLAXIS
     Dosage: UNK
     Dates: start: 20181224
  3. DELAMANID [Suspect]
     Active Substance: DELAMANID
     Indication: PULMONARY TUBERCULOSIS
     Dosage: 200 MILLIGRAM, QD
     Route: 048
     Dates: start: 20181224
  4. AMOXICILLIN (+) CLAVULANATE POTASSIUM [Suspect]
     Active Substance: AMOXICILLIN\CLAVULANATE POTASSIUM
     Indication: PULMONARY TUBERCULOSIS
     Dosage: 625 MILLIGRAM, TWICE DAILY
     Route: 048
     Dates: start: 20181224
  5. LINEZOLID. [Suspect]
     Active Substance: LINEZOLID
     Indication: PULMONARY TUBERCULOSIS
     Dosage: 600 MILLIGRAM, ONCE DAILY
     Route: 048
     Dates: start: 20181224
  6. OMEPRAZOLE. [Concomitant]
     Active Substance: OMEPRAZOLE
     Indication: ANTACID THERAPY
     Dosage: UNK
     Dates: start: 20181224
  7. IMIPENEM AND CILASTATIN [Suspect]
     Active Substance: CILASTATIN SODIUM\IMIPENEM
     Indication: PULMONARY TUBERCULOSIS
     Dosage: 1 GRAM, TWICE DAILY
     Route: 042
     Dates: start: 20181224
  8. CLOFAZIMINE [Suspect]
     Active Substance: CLOFAZIMINE
     Indication: PULMONARY TUBERCULOSIS
     Dosage: 200 MILLIGRAM, ONCE DAILY
     Route: 048
     Dates: start: 20181224
  9. PYRAZINAMIDE. [Suspect]
     Active Substance: PYRAZINAMIDE
     Indication: PULMONARY TUBERCULOSIS
     Dosage: 1000 MG, ONCE DAILY
     Route: 048
     Dates: start: 20181224, end: 20190121

REACTIONS (1)
  - Sepsis [Recovering/Resolving]

NARRATIVE: CASE EVENT DATE: 20190202
